FAERS Safety Report 23560052 (Version 2)
Quarter: 2024Q1

REPORT INFORMATION
  Report Type: Spontaneous
  Country: US (occurrence: US)
  Receive Date: 20240223
  Receipt Date: 20240320
  Transmission Date: 20240410
  Serious: No
  Sender: FDA-Public Use
  Company Number: US-BRISTOL-MYERS SQUIBB COMPANY-2024-026025

PATIENT
  Age: 74 Year
  Sex: Female

DRUGS (1)
  1. LENALIDOMIDE [Suspect]
     Active Substance: LENALIDOMIDE
     Indication: Plasma cell myeloma
     Dosage: FREQUENCY-TAKE 1 CAPSULE BY ?MOUTH DAILY ON ?DAYS 1-21, THEN 7 ?DAYS OFF
     Route: 048

REACTIONS (11)
  - Nausea [Unknown]
  - Decreased appetite [Unknown]
  - Diarrhoea [Unknown]
  - Constipation [Unknown]
  - Depression [Unknown]
  - Psychiatric symptom [Unknown]
  - Arthralgia [Unknown]
  - Muscular weakness [Unknown]
  - Pain [Unknown]
  - Treatment noncompliance [Unknown]
  - COVID-19 [Unknown]

NARRATIVE: CASE EVENT DATE: 20240201
